FAERS Safety Report 19801740 (Version 1)
Quarter: 2021Q3

REPORT INFORMATION
  Report Type: Spontaneous
  Country: US (occurrence: US)
  Receive Date: 20210907
  Receipt Date: 20210907
  Transmission Date: 20211014
  Serious: No
  Sender: FDA-Public Use
  Company Number: US-JNJFOC-20210836283

PATIENT
  Age: 21 Year
  Sex: Male
  Weight: 35.4 kg

DRUGS (11)
  1. METFORMIN [Concomitant]
     Active Substance: METFORMIN HYDROCHLORIDE
     Dates: start: 202005
  2. METRELEPTIN [Concomitant]
     Active Substance: METRELEPTIN
     Indication: CONGENITAL GENERALISED LIPODYSTROPHY
     Route: 058
     Dates: start: 20150723
  3. CHOLECALCIFEROL [Concomitant]
     Active Substance: CHOLECALCIFEROL
     Dates: start: 2012
  4. METRELEPTIN [Concomitant]
     Active Substance: METRELEPTIN
     Route: 058
  5. METRELEPTIN [Concomitant]
     Active Substance: METRELEPTIN
     Route: 058
     Dates: start: 20190623
  6. INVOKANA [Suspect]
     Active Substance: CANAGLIFLOZIN
     Indication: DIABETES MELLITUS
     Route: 048
  7. METRELEPTIN [Concomitant]
     Active Substance: METRELEPTIN
     Route: 058
     Dates: start: 20170717
  8. ENALAPRIL [Concomitant]
     Active Substance: ENALAPRIL
  9. OMEGA 3 ACID ETHYL ESTERS [Concomitant]
     Active Substance: OMEGA-3-ACID ETHYL ESTERS
  10. METFORMIN [Concomitant]
     Active Substance: METFORMIN HYDROCHLORIDE
     Dates: end: 202005
  11. VITAMIN D [ERGOCALCIFEROL] [Concomitant]
     Active Substance: ERGOCALCIFEROL

REACTIONS (2)
  - Migraine [Recovered/Resolved]
  - Dehydration [Unknown]

NARRATIVE: CASE EVENT DATE: 202012
